FAERS Safety Report 6164520-4 (Version None)
Quarter: 2009Q2

REPORT INFORMATION
  Report Type: 
  Country: None (occurrence: None)
  Receive Date: 20090421
  Receipt Date: 20090409
  Transmission Date: 20091009
  Serious: Yes (Disabling)
  Sender: FDA-Public Use
  Company Number: ADE2009-0560

PATIENT
  Age: 58 Year
  Sex: Male
  Weight: 107.7 kg

DRUGS (10)
  1. SIMVASTATIN [Suspect]
     Indication: HYPERLIPIDAEMIA
     Dosage: 40MG - ORAL
     Route: 048
  2. BYETTA [Suspect]
     Indication: DIABETES MELLITUS
     Dosage: 10MG - SUBQ INJ
     Route: 042
     Dates: start: 20080424
  3. AMLODIPINE [Concomitant]
  4. ASPIRIN [Concomitant]
  5. GABAPENTIN [Concomitant]
  6. IRBESARTAN [Concomitant]
  7. LANTUS [Concomitant]
  8. METFORMIN HCL [Concomitant]
  9. INDAPAMIDE [Concomitant]
  10. PANTOPRAZOLE SODIUM [Concomitant]

REACTIONS (2)
  - PAIN IN EXTREMITY [None]
  - THROMBOSIS [None]
